FAERS Safety Report 5032265-X (Version None)
Quarter: 2006Q2

REPORT INFORMATION
  Report Type: 
  Country: None (occurrence: None)
  Receive Date: 20060619
  Receipt Date: 20060612
  Transmission Date: 20061013
  Serious: Yes (Death)
  Sender: FDA-Public Use
  Company Number: KADN20060019

PATIENT
  Sex: Male

DRUGS (1)
  1. KADIAN [Suspect]
     Indication: PAIN
     Dates: end: 20010901

REACTIONS (1)
  - OVERDOSE [None]
